FAERS Safety Report 8545419-2 (Version None)
Quarter: 2012Q3

REPORT INFORMATION
  Report Type: 
  Country: None (occurrence: None)
  Receive Date: 20120727
  Receipt Date: 20111103
  Transmission Date: 20120928
  Serious: No
  Sender: FDA-Public Use
  Company Number: US-ASTRAZENECA-2011SE66691

PATIENT
  Age: 40 Year
  Sex: Female
  Weight: 99.8 kg

DRUGS (3)
  1. SEROQUEL XR [Suspect]
     Route: 048
     Dates: start: 20111001
  2. SEROQUEL XR [Suspect]
     Route: 048
  3. SEROQUEL XR [Suspect]
     Indication: BIPOLAR II DISORDER
     Route: 048

REACTIONS (3)
  - SLEEP DISORDER [None]
  - SLUGGISHNESS [None]
  - DISTURBANCE IN ATTENTION [None]
